FAERS Safety Report 7921348-X (Version None)
Quarter: 2011Q4

REPORT INFORMATION
  Report Type: 
  Country: None (occurrence: None)
  Receive Date: 20111117
  Receipt Date: 20111108
  Transmission Date: 20120403
  Serious: Yes (Hospitalization)
  Sender: FDA-Public Use
  Company Number: JP-ROCHE-1006194

PATIENT
  Sex: Male
  Weight: 47 kg

DRUGS (5)
  1. ALFAROL [Suspect]
     Indication: PRODUCT USED FOR UNKNOWN INDICATION
     Dosage: FROM:PERORAL AGENT, DOSAGE IS UNCERTAIN
     Route: 048
  2. ACTEMRA [Suspect]
     Indication: JUVENILE ARTHRITIS
     Route: 041
     Dates: start: 20080610, end: 20080626
  3. ACTEMRA [Suspect]
     Route: 041
     Dates: start: 20080710, end: 20090821
  4. ADRENAL HORMONE PREPARATION (UNK INGREDIENTS) [Suspect]
     Indication: JUVENILE ARTHRITIS
     Dosage: FORM: PERORAL AGENT
     Route: 048
  5. ACTEMRA [Suspect]
     Route: 041
     Dates: start: 20080904, end: 20090625

REACTIONS (2)
  - NEPHROLITHIASIS [None]
  - HYDRONEPHROSIS [None]
